FAERS Safety Report 6480308-9 (Version None)
Quarter: 2009Q4

REPORT INFORMATION
  Report Type: 
  Country: None (occurrence: None)
  Receive Date: 20091202
  Receipt Date: 20091116
  Transmission Date: 20100525
  Serious: Yes (Other)
  Sender: FDA-Public Use
  Company Number: 09US005140

PATIENT
  Sex: Male

DRUGS (1)
  1. NAPROXEN [Suspect]
     Indication: NASOPHARYNGITIS
     Dosage: 1/2 TABLET, ORAL
     Route: 048
     Dates: start: 20091106, end: 20091106

REACTIONS (5)
  - CARDIAC DISORDER [None]
  - DYSPNOEA [None]
  - FAECAL INCONTINENCE [None]
  - HYPOAESTHESIA [None]
  - LOSS OF CONSCIOUSNESS [None]
